FAERS Safety Report 6405505-X (Version None)
Quarter: 2009Q4

REPORT INFORMATION
  Report Type: 
  Country: None (occurrence: None)
  Receive Date: 20091019
  Receipt Date: 20090903
  Transmission Date: 20100525
  Serious: No
  Sender: FDA-Public Use
  Company Number: US-BAYER-200932397NA

PATIENT
  Age: 39 Year
  Sex: Female

DRUGS (3)
  1. MIRENA [Suspect]
     Indication: CONTRACEPTION
     Dosage: CONTINUOUS
     Route: 015
     Dates: start: 20090831
  2. YASMIN [Suspect]
     Indication: CONTRACEPTION
     Route: 048
     Dates: end: 20090701
  3. MINI PILL [Concomitant]
     Indication: DRUG USE FOR UNKNOWN INDICATION
     Dates: start: 20090731

REACTIONS (2)
  - ALOPECIA [None]
  - PROCEDURAL PAIN [None]
